FAERS Safety Report 15165797 (Version 1)
Quarter: 2018Q3

REPORT INFORMATION
  Report Type: Report from Study
  Country: US (occurrence: US)
  Receive Date: 20180719
  Receipt Date: 20180719
  Transmission Date: 20181010
  Serious: No
  Sender: FDA-Public Use
  Company Number: PHEH2018US029325

PATIENT
  Sex: Male

DRUGS (1)
  1. ENTRESTO [Suspect]
     Active Substance: SACUBITRIL\VALSARTAN
     Indication: CARDIAC FAILURE
     Dosage: 3 DF (24/26 MG), QD (1 PILL IN AM AND 2PILLS IN PM)
     Route: 048

REACTIONS (1)
  - Inappropriate schedule of drug administration [Unknown]
